FAERS Safety Report 8118453-4 (Version None)
Quarter: 2012Q1

REPORT INFORMATION
  Report Type: 
  Country: None (occurrence: None)
  Receive Date: 20120201
  Receipt Date: 20111005
  Transmission Date: 20120608
  Serious: Yes (Hospitalization, Other)
  Sender: FDA-Public Use
  Company Number: 2011005242

PATIENT
  Age: 5 Year
  Sex: Female

DRUGS (2)
  1. ERYTHROMYCIN [Suspect]
     Indication: TONSILLITIS
     Dosage: (250 MG, TOTAL OF 2 DOSES), ORAL
     Route: 048
     Dates: start: 20110922, end: 20110923
  2. PARACETAMOL [Concomitant]

REACTIONS (3)
  - PANCREATITIS ACUTE [None]
  - PALLOR [None]
  - ABDOMINAL RIGIDITY [None]
